FAERS Safety Report 8226425-4 (Version None)
Quarter: 2012Q1

REPORT INFORMATION
  Report Type: 
  Country: None (occurrence: None)
  Receive Date: 20120321
  Receipt Date: 20120314
  Transmission Date: 20120608
  Serious: Yes (Hospitalization)
  Sender: FDA-Public Use
  Company Number: US-CELGENEUS-163-20785-12031765

PATIENT
  Sex: Female

DRUGS (7)
  1. ANTIBIOTICS [Concomitant]
     Route: 065
  2. THALOMID [Suspect]
     Indication: MULTIPLE MYELOMA
     Dosage: 100 MILLIGRAM
     Route: 048
     Dates: start: 20111201
  3. LISINOPRIL [Concomitant]
     Indication: HYPERTENSION
     Route: 065
  4. COREG [Concomitant]
     Indication: EJECTION FRACTION
     Route: 065
  5. LOVENOX [Concomitant]
     Route: 065
  6. DILAUDID [Concomitant]
     Indication: PAIN
     Route: 065
  7. AMBIEN [Concomitant]
     Route: 065

REACTIONS (5)
  - ACUTE MYELOID LEUKAEMIA [None]
  - NAUSEA [None]
  - CHEST PAIN [None]
  - MULTIPLE MYELOMA [None]
  - VOMITING [None]
